FAERS Safety Report 8854601 (Version 3)
Quarter: 2014Q4

REPORT INFORMATION
  Report Type: Spontaneous
  Country: GB (occurrence: GB)
  Receive Date: 20121023
  Receipt Date: 20141121
  Transmission Date: 20150529
  Serious: Yes (Death, Congenital Anomaly, Other)
  Sender: FDA-Public Use
  Company Number: GB-SANOFI-AVENTIS-2012SA076187

PATIENT
  Sex: Female
  Weight: 2 kg

DRUGS (2)
  1. ZOLPIDEM [Suspect]
     Active Substance: ZOLPIDEM\ZOLPIDEM TARTRATE
     Indication: INSOMNIA
     Dosage: DOSE: 10 UNITS NOT SPECIFIED
     Route: 064
     Dates: end: 20120519
  2. TYSABRI [Suspect]
     Active Substance: NATALIZUMAB
     Indication: MULTIPLE SCLEROSIS
     Dosage: FREQUENCY:4 EVERY 1 WEEK
     Route: 064
     Dates: start: 201003, end: 20120511

REACTIONS (8)
  - Renal failure [Fatal]
  - Ureteric dilatation [Not Recovered/Not Resolved]
  - Urethral valves [Not Recovered/Not Resolved]
  - Urinary tract obstruction [Not Recovered/Not Resolved]
  - Pulmonary hypoplasia [Not Recovered/Not Resolved]
  - Congenital cystic kidney disease [Fatal]
  - Foetal exposure during pregnancy [Unknown]
  - Renal dysplasia [Not Recovered/Not Resolved]

NARRATIVE: CASE EVENT DATE: 20120907
